FAERS Safety Report 19655017 (Version 1)
Quarter: 2021Q3

REPORT INFORMATION
  Report Type: Spontaneous
  Country: US (occurrence: US)
  Receive Date: 20210804
  Receipt Date: 20210804
  Transmission Date: 20211014
  Serious: No
  Sender: FDA-Public Use
  Company Number: US-GLENMARK PHARMACEUTICALS-2020GMK051467

PATIENT

DRUGS (1)
  1. APREPITANT CAPSULES USP [40 MG] [Suspect]
     Active Substance: APREPITANT
     Indication: NAUSEA
     Dosage: 40 MILLIGRAM, OD
     Route: 048

REACTIONS (3)
  - Drug ineffective for unapproved indication [Unknown]
  - Nausea [Unknown]
  - Product use issue [Unknown]
